FAERS Safety Report 23685279 (Version 1)
Quarter: 2024Q1

REPORT INFORMATION
  Report Type: Spontaneous
  Country: TR (occurrence: TR)
  Receive Date: 20240329
  Receipt Date: 20240329
  Transmission Date: 20240410
  Serious: Yes (Hospitalization)
  Sender: FDA-Public Use
  Company Number: TR-NOVOPROD-1195519

PATIENT
  Sex: Male
  Weight: 3.14 kg

DRUGS (7)
  1. LEVEMIR [Suspect]
     Active Substance: INSULIN DETEMIR
     Indication: Gestational diabetes
     Dosage: 12 IU, QD
     Route: 064
     Dates: end: 20231121
  2. NOVORAPID [Suspect]
     Active Substance: INSULIN ASPART
     Indication: Gestational diabetes
     Dosage: 20 IU, QD
     Route: 064
     Dates: end: 20231121
  3. EUTHYROX [Concomitant]
     Active Substance: LEVOTHYROXINE SODIUM
     Indication: Hypothyroidism
     Dosage: QD
     Route: 064
     Dates: end: 20231121
  4. ALFAMED [Concomitant]
     Indication: Hypertension
     Dosage: UNK
     Route: 064
     Dates: end: 20231121
  5. MAGOSIT [Concomitant]
     Indication: Blood magnesium abnormal
     Dosage: QD
     Route: 064
     Dates: end: 20231121
  6. COLLAGEN [Concomitant]
     Active Substance: COLLAGEN
     Indication: Vitamin D abnormal
     Dosage: 4X1 DROPS
     Route: 064
     Dates: end: 20231121
  7. ASPIRIN [Concomitant]
     Active Substance: ASPIRIN
     Dosage: UNK
     Route: 064
     Dates: end: 20231121

REACTIONS (3)
  - Respiratory disorder neonatal [Recovered/Resolved]
  - Premature baby [Recovered/Resolved]
  - Foetal exposure during pregnancy [Recovered/Resolved]

NARRATIVE: CASE EVENT DATE: 20231101
